FAERS Safety Report 25831925 (Version 1)
Quarter: 2025Q3

REPORT INFORMATION
  Report Type: Spontaneous
  Country: US (occurrence: None)
  Receive Date: 20250922
  Receipt Date: 20250922
  Transmission Date: 20251021
  Serious: No
  Sender: INCYTE
  Company Number: US-INCYTE CORPORATION-2025IN010047

PATIENT
  Age: 3 Year

DRUGS (1)
  1. JAKAFI [Suspect]
     Active Substance: RUXOLITINIB
     Indication: Rheumatoid arthritis
     Dosage: 2.5 MILLIGRAM, BID (1/2 TABLET)

REACTIONS (2)
  - Wrong technique in product usage process [Unknown]
  - Off label use [Unknown]
